FAERS Safety Report 18575061 (Version 9)
Quarter: 2024Q3

REPORT INFORMATION
  Report Type: Spontaneous
  Country: US (occurrence: US)
  Receive Date: 20201203
  Receipt Date: 20240809
  Transmission Date: 20241016
  Serious: Yes (Other)
  Sender: PFIZER
  Company Number: US-PFIZER INC-2020473637

PATIENT
  Age: 75 Year
  Sex: Female

DRUGS (3)
  1. XELJANZ XR [Suspect]
     Active Substance: TOFACITINIB CITRATE
     Dosage: 11 MG
  2. XELJANZ XR [Suspect]
     Active Substance: TOFACITINIB CITRATE
     Dosage: 11 MG
  3. METHOTREXATE [Concomitant]
     Active Substance: METHOTREXATE
     Dosage: UNK

REACTIONS (9)
  - Road traffic accident [Unknown]
  - Myocardial infarction [Unknown]
  - Choking [Unknown]
  - Mental impairment [Not Recovered/Not Resolved]
  - Asthma [Unknown]
  - Memory impairment [Unknown]
  - Pain in extremity [Unknown]
  - Vertigo [Recovering/Resolving]
  - Amnesia [Recovering/Resolving]

NARRATIVE: CASE EVENT DATE: 20240101
